FAERS Safety Report 4755444-5 (Version None)
Quarter: 2005Q3

REPORT INFORMATION
  Report Type: 
  Country: None (occurrence: None)
  Receive Date: 20050826
  Receipt Date: 20050826
  Transmission Date: 20060218
  Serious: Yes (Life-Threatening, Hospitalization)
  Sender: FDA-Public Use
  Company Number: None

PATIENT
  Age: 53 Year
  Sex: Female
  Weight: 85 kg

DRUGS (12)
  1. GEMZAR [Suspect]
     Indication: BREAST CANCER METASTATIC
     Dosage: 1700 MG IV
     Route: 042
     Dates: start: 20050101, end: 20050812
  2. NAVELBINE [Suspect]
     Indication: BREAST CANCER METASTATIC
     Dosage: 45 MG IV
     Route: 042
     Dates: start: 20050101, end: 20050812
  3. ANZEMET [Concomitant]
  4. DECADRON [Concomitant]
  5. NAVELBINE [Concomitant]
  6. GEMZAR [Concomitant]
  7. ZOLOFT [Concomitant]
  8. TRAZODONE [Concomitant]
  9. CLONAZEPAM [Concomitant]
  10. NAPROXEN [Concomitant]
  11. ARANESP [Concomitant]
  12. NEULASTA [Concomitant]

REACTIONS (5)
  - ACUTE RESPIRATORY FAILURE [None]
  - HYPERTENSION [None]
  - LUNG DISORDER [None]
  - LUNG INFILTRATION [None]
  - RESPIRATORY DISTRESS [None]
